FAERS Safety Report 10029969 (Version 1)
Quarter: 2014Q1

REPORT INFORMATION
  Report Type: Spontaneous
  Country: US (occurrence: US)
  Receive Date: 20140323
  Receipt Date: 20140323
  Transmission Date: 20141002
  Serious: No
  Sender: FDA-Public Use
  Company Number: US-ALLERGAN-1305364US

PATIENT
  Age: 69 Year
  Sex: Female

DRUGS (5)
  1. LATISSE 0.03% [Suspect]
     Indication: GROWTH OF EYELASHES
     Dosage: UNK
     Route: 061
     Dates: start: 20130214
  2. FOSOMAX GENERIC [Concomitant]
     Indication: BONE DISORDER
     Dosage: UNK
  3. SIMVASTATIN [Concomitant]
     Indication: BLOOD CHOLESTEROL INCREASED
     Dosage: UNK
     Route: 048
  4. NATURAL TEARS [Concomitant]
     Indication: EYE ALLERGY
     Dosage: UNK
     Route: 047
  5. ALAWAY [Concomitant]
     Indication: EYE ALLERGY
     Dosage: UNK
     Route: 047

REACTIONS (2)
  - Wrong technique in drug usage process [Unknown]
  - Drug ineffective [Unknown]
